FAERS Safety Report 19152832 (Version 1)
Quarter: 2021Q2

REPORT INFORMATION
  Report Type: Spontaneous
  Country: US (occurrence: US)
  Receive Date: 20210417
  Receipt Date: 20210417
  Transmission Date: 20210717
  Serious: Yes (Other)
  Sender: FDA-Public Use
  Company Number: None

PATIENT
  Age: 51 Year
  Sex: Female
  Weight: 90 kg

DRUGS (1)
  1. CHLORHEXIDINE [Suspect]
     Active Substance: CHLORHEXIDINE
     Indication: ANTIBIOTIC PROPHYLAXIS
     Dates: start: 20210408, end: 20210408

REACTIONS (8)
  - Skin discolouration [None]
  - Impaired work ability [None]
  - Swelling [None]
  - Quality of life decreased [None]
  - Urticaria [None]
  - Rash [None]
  - Pain [None]
  - Dyspnoea [None]

NARRATIVE: CASE EVENT DATE: 20210408
